FAERS Safety Report 22045992 (Version 1)
Quarter: 2023Q1

REPORT INFORMATION
  Report Type: Spontaneous
  Country: JP (occurrence: JP)
  Receive Date: 20230228
  Receipt Date: 20230228
  Transmission Date: 20230418
  Serious: Yes (Death, Hospitalization, Other)
  Sender: FDA-Public Use
  Company Number: JP-TEVA-2023-JP-2860717

PATIENT
  Age: 77 Year
  Sex: Female

DRUGS (5)
  1. PREDNISOLONE [Suspect]
     Active Substance: PREDNISOLONE
     Indication: Myasthenic syndrome
     Dosage: 80 MILLIGRAM DAILY; ONCE A DAY
     Route: 065
  2. PREDNISOLONE [Suspect]
     Active Substance: PREDNISOLONE
     Dosage: 40 MILLIGRAM DAILY; DOSE REDUCED, ONCE A DAY
     Route: 065
  3. NIVOLUMAB [Suspect]
     Active Substance: NIVOLUMAB
     Indication: Lung adenocarcinoma stage I
     Dosage: RECEIVED EVERY 2 WEEKS AS SECOND-LINE THERAPY, 2 MG/KG
     Route: 041
  4. PEMETREXED [Suspect]
     Active Substance: PEMETREXED
     Indication: Lung adenocarcinoma stage I
     Dosage: RECEIVED 5 CYCLES
     Route: 065
  5. Codeine-phosphate [Concomitant]
     Indication: Cough
     Route: 065

REACTIONS (12)
  - Drug ineffective [Fatal]
  - Myasthenic syndrome [Not Recovered/Not Resolved]
  - Aspartate aminotransferase increased [Unknown]
  - Alanine aminotransferase increased [Unknown]
  - Blood lactate dehydrogenase increased [Unknown]
  - Brain natriuretic peptide increased [Unknown]
  - Blood creatine phosphokinase increased [Unknown]
  - Blood creatine phosphokinase MB increased [Unknown]
  - Troponin T increased [Unknown]
  - Autoimmune myocarditis [Recovering/Resolving]
  - Myositis [Recovering/Resolving]
  - Atrioventricular dissociation [Recovering/Resolving]
